FAERS Safety Report 11582904 (Version 1)
Quarter: 2015Q4

REPORT INFORMATION
  Report Type: Spontaneous
  Country: US (occurrence: US)
  Receive Date: 20151001
  Receipt Date: 20151001
  Transmission Date: 20160304
  Serious: Yes (Other)
  Sender: FDA-Public Use
  Company Number: US-ROCHE-670770

PATIENT
  Age: 55 Year
  Sex: Female
  Weight: 81.6 kg

DRUGS (6)
  1. PEGASYS [Suspect]
     Active Substance: PEGINTERFERON ALFA-2A
     Indication: HEPATITIS C
     Dosage: OTHER INDICATION: CIRRHOSIS, FORM: PRE-FILLED SYRINGE
     Route: 065
     Dates: start: 20091009, end: 20091106
  2. RIBAVIRIN. [Suspect]
     Active Substance: RIBAVIRIN
     Indication: HEPATITIS C
     Dosage: DIVIDED DOSES, PILLS, OTHER INDICATION: CIRRHOSIS
     Route: 065
  3. COPEGUS [Suspect]
     Active Substance: RIBAVIRIN
     Indication: HEPATITIS C
     Route: 065
  4. PEGASYS [Suspect]
     Active Substance: PEGINTERFERON ALFA-2A
     Route: 065
  5. PEGASYS [Suspect]
     Active Substance: PEGINTERFERON ALFA-2A
     Dosage: DOSE REDUCED TO HALF, COMPLETED 25 WEEKS OF TREATMENT.
     Route: 065
  6. RIBAVIRIN. [Suspect]
     Active Substance: RIBAVIRIN
     Route: 065

REACTIONS (18)
  - Pain [Recovering/Resolving]
  - Pyrexia [Unknown]
  - Nausea [Not Recovered/Not Resolved]
  - White blood cell count decreased [Not Recovered/Not Resolved]
  - No therapeutic response [Unknown]
  - Nasopharyngitis [Unknown]
  - Rhinorrhoea [Recovering/Resolving]
  - Chills [Recovering/Resolving]
  - Cough [Not Recovered/Not Resolved]
  - Full blood count decreased [Not Recovered/Not Resolved]
  - Headache [Unknown]
  - Appetite disorder [Unknown]
  - Insomnia [Not Recovered/Not Resolved]
  - Respiratory tract congestion [Recovering/Resolving]
  - Influenza like illness [Unknown]
  - Fatigue [Not Recovered/Not Resolved]
  - Fluid retention [Unknown]
  - Decreased appetite [Not Recovered/Not Resolved]

NARRATIVE: CASE EVENT DATE: 200911
